FAERS Safety Report 24817982 (Version 1)
Quarter: 2025Q1

REPORT INFORMATION
  Report Type: Spontaneous
  Country: FR (occurrence: FR)
  Receive Date: 20250108
  Receipt Date: 20250108
  Transmission Date: 20250409
  Serious: Yes (Hospitalization)
  Sender: ROCHE
  Company Number: None

PATIENT
  Age: 34 Year
  Sex: Female
  Weight: 65 kg

DRUGS (4)
  1. MABTHERA [Suspect]
     Active Substance: RITUXIMAB
     Indication: Systemic lupus erythematosus
     Route: 042
     Dates: start: 20240322, end: 20240322
  2. AZATHIOPRINE [Concomitant]
     Active Substance: AZATHIOPRINE
     Indication: Systemic lupus erythematosus
     Dates: start: 202010, end: 20230321
  3. PLAQUENIL 200 mg, comprim? enrob? [Concomitant]
     Indication: Systemic lupus erythematosus
     Route: 048
     Dates: start: 20200423
  4. PHOSPHATE DISODIQUE DE PREDNISOLONE [Concomitant]
     Route: 048
     Dates: start: 201908

REACTIONS (1)
  - Serum sickness-like reaction [Not Recovered/Not Resolved]

NARRATIVE: CASE EVENT DATE: 20240323
